FAERS Safety Report 21466861 (Version 3)
Quarter: 2022Q4

REPORT INFORMATION
  Report Type: Spontaneous
  Country: US (occurrence: US)
  Receive Date: 20221017
  Receipt Date: 20221214
  Transmission Date: 20230112
  Serious: No
  Sender: FDA-Public Use
  Company Number: US-PFIZER INC-2021306098

PATIENT
  Age: 89 Year
  Sex: Male

DRUGS (1)
  1. BRAFTOVI [Suspect]
     Active Substance: ENCORAFENIB
     Indication: Colon cancer
     Dosage: 225 MG, DAILY (75 MG TAKING 3 CAP (225 MG) A DAY AND SKIPPING SAT + SUN)

REACTIONS (2)
  - Hypoacusis [Unknown]
  - Off label use [Unknown]
